FAERS Safety Report 9642981 (Version 2)
Quarter: 2013Q4

REPORT INFORMATION
  Report Type: Report from Study
  Country: US (occurrence: US)
  Receive Date: 20131024
  Receipt Date: 20131028
  Transmission Date: 20140711
  Serious: Yes (Hospitalization)
  Sender: FDA-Public Use
  Company Number: US-ABBVIE-13P-163-1158630-00

PATIENT
  Age: 56 Year
  Sex: Female
  Weight: 76.73 kg

DRUGS (7)
  1. HUMIRA [Suspect]
     Indication: PSORIATIC ARTHROPATHY
     Dates: start: 2007, end: 201309
  2. LEVAMIRE [Concomitant]
     Indication: DIABETES MELLITUS
  3. NOVOLOG [Concomitant]
     Indication: DIABETES MELLITUS
  4. LOSARTATAN POTASSIUM [Concomitant]
     Indication: HYPERTENSION
  5. ATENOLOL [Concomitant]
     Indication: HYPERTENSION
  6. FUROSEMIDE [Concomitant]
     Indication: FLUID RETENTION
  7. CALCIPOTREME LIQUID [Concomitant]
     Indication: PSORIASIS
     Dosage: PRN

REACTIONS (7)
  - Oedema peripheral [Not Recovered/Not Resolved]
  - Dyspnoea [Recovered/Resolved]
  - Oedema peripheral [Not Recovered/Not Resolved]
  - Psoriasis [Not Recovered/Not Resolved]
  - Blister [Recovering/Resolving]
  - Nephrotic syndrome [Not Recovered/Not Resolved]
  - Protein urine present [Not Recovered/Not Resolved]
